FAERS Safety Report 16702078 (Version 1)
Quarter: 2019Q3

REPORT INFORMATION
  Report Type: Spontaneous
  Country: US (occurrence: US)
  Receive Date: 20190813
  Receipt Date: 20190813
  Transmission Date: 20191004
  Serious: Yes (Death)
  Sender: FDA-Public Use
  Company Number: None

PATIENT
  Age: 81 Year
  Sex: Female

DRUGS (15)
  1. IPRATROPIUM [Concomitant]
     Active Substance: IPRATROPIUM
  2. LIVALO [Concomitant]
     Active Substance: PITAVASTATIN CALCIUM
  3. MULTI VITAMIN [Concomitant]
     Active Substance: VITAMINS
  4. CHLOECALCIF [Concomitant]
  5. TRESIBA [Concomitant]
     Active Substance: INSULIN DEGLUDEC
  6. ZETIA [Concomitant]
     Active Substance: EZETIMIBE
  7. VICTOZA [Concomitant]
     Active Substance: LIRAGLUTIDE
  8. INSULIN [Concomitant]
     Active Substance: INSULIN NOS
  9. MONTELUKAST [Concomitant]
     Active Substance: MONTELUKAST SODIUM
  10. POT CHLORIDE [Concomitant]
     Active Substance: POTASSIUM CHLORIDE
  11. COUMADIN [Concomitant]
     Active Substance: WARFARIN SODIUM
  12. HYQVIA [Suspect]
     Active Substance: HUMAN IMMUNOGLOBULIN G\HYALURONIDASE RECOMBINANT HUMAN
     Indication: IMMUNODEFICIENCY
     Dosage: ?          OTHER FREQUENCY:EVERY 3 WEEKS;OTHER ROUTE:INFUSION?
     Dates: start: 20150819, end: 20181213
  13. FUROSEMIDE. [Concomitant]
     Active Substance: FUROSEMIDE
  14. METOPROLOL. [Concomitant]
     Active Substance: METOPROLOL
  15. PANTOPRAZOLE [Concomitant]
     Active Substance: PANTOPRAZOLE

REACTIONS (1)
  - Death [None]

NARRATIVE: CASE EVENT DATE: 20181213
